FAERS Safety Report 24957269 (Version 2)
Quarter: 2025Q1

REPORT INFORMATION
  Report Type: Spontaneous
  Country: GB (occurrence: GB)
  Receive Date: 20250211
  Receipt Date: 20250326
  Transmission Date: 20250409
  Serious: Yes (Death, Life-Threatening, Hospitalization, Other)
  Sender: JOHNSON AND JOHNSON
  Company Number: None

PATIENT
  Age: 68 Year
  Sex: Male

DRUGS (6)
  1. SIMPONI [Suspect]
     Active Substance: GOLIMUMAB
     Indication: Rheumatoid arthritis
     Route: 058
     Dates: start: 202401
  2. SIMPONI [Suspect]
     Active Substance: GOLIMUMAB
     Dosage: WAS UPPED TO 100MG ONCE A MONTH DESPITE BEING UNDER THE RECOMMENDED WEIGHT.
     Route: 058
     Dates: start: 202305
  3. SIMPONI [Suspect]
     Active Substance: GOLIMUMAB
     Dosage: PUT BACK TO 50MGS MONTHLY WHICH WASN^T CONTROLLING HIS RHEUMATOID ARTHRITIS.
     Route: 058
     Dates: start: 202311
  4. SIMPONI [Suspect]
     Active Substance: GOLIMUMAB
     Dosage: STANDARD DOSE 50MG ONCE EVERY MONTH
     Route: 058
     Dates: start: 20220726
  5. SHINGRIX [Concomitant]
     Active Substance: RECOMBINANT VARICELLA ZOSTER VIRUS (VZV) GLYCOPROTEIN E
     Indication: Product used for unknown indication
     Dates: start: 20240723, end: 20240723
  6. PREDNISOLONE [Concomitant]
     Active Substance: PREDNISOLONE
     Indication: Rheumatoid arthritis

REACTIONS (7)
  - Pulmonary fibrosis [Fatal]
  - Acute kidney injury [Unknown]
  - Rheumatoid arthritis [Unknown]
  - Respiratory syncytial virus infection [Not Recovered/Not Resolved]
  - C-reactive protein increased [Unknown]
  - Lower respiratory tract infection [Unknown]
  - Pneumocystis jirovecii pneumonia [Not Recovered/Not Resolved]

NARRATIVE: CASE EVENT DATE: 20240824
